FAERS Safety Report 24191163 (Version 2)
Quarter: 2024Q3

REPORT INFORMATION
  Report Type: Spontaneous
  Country: JP (occurrence: JP)
  Receive Date: 20240808
  Receipt Date: 20240909
  Transmission Date: 20241016
  Serious: Yes (Other)
  Sender: AMGEN
  Company Number: JP-KYOWAKIRIN-2024KK018474

PATIENT
  Age: 57 Year
  Sex: Female

DRUGS (4)
  1. PEGFILGRASTIM [Suspect]
     Active Substance: PEGFILGRASTIM
     Indication: Colony stimulating factor therapy
     Dosage: 3.6 MG, G-LASTA SUBCUTANEOUS INJECTION 3.6 MG WAS ADMINISTERED ON DAY 3 OF EACH TREATMENT CYCLE
     Route: 058
     Dates: start: 20210308, end: 20210623
  2. TRASTUZUMAB [Concomitant]
     Active Substance: TRASTUZUMAB
     Indication: Invasive ductal breast carcinoma
     Dosage: UNK, THE PATIENT WAS STARTED ON CHEMOTHERAPY EVERY 3 WEEKS
     Route: 065
     Dates: start: 20210308
  3. PERTUZUMAB [Concomitant]
     Active Substance: PERTUZUMAB
     Indication: Invasive ductal breast carcinoma
     Dosage: UNK, THE PATIENT WAS STARTED ON CHEMOTHERAPY EVERY 3 WEEKS.
     Route: 065
     Dates: start: 20210308
  4. DOCETAXEL [Concomitant]
     Active Substance: DOCETAXEL\DOCETAXEL ANHYDROUS
     Indication: Invasive ductal breast carcinoma
     Dosage: UNK, THE PATIENT WAS STARTED ON CHEMOTHERAPY EVERY 3 WEEKS.
     Route: 065
     Dates: start: 20210308

REACTIONS (1)
  - Splenic infarction [Recovered/Resolved]

NARRATIVE: CASE EVENT DATE: 20210101
